FAERS Safety Report 10459811 (Version 1)
Quarter: 2014Q3

REPORT INFORMATION
  Report Type: Report from Study
  Country: JP (occurrence: JP)
  Receive Date: 20140917
  Receipt Date: 20140917
  Transmission Date: 20150326
  Serious: Yes (Death, Life-Threatening, Hospitalization)
  Sender: FDA-Public Use
  Company Number: JP-SA-2014SA122399

PATIENT
  Age: 6 Year
  Sex: Male
  Weight: 20 kg

DRUGS (15)
  1. ACICLOVIR [Suspect]
     Active Substance: ACYCLOVIR
     Indication: INFECTION PROPHYLAXIS
     Route: 065
     Dates: start: 20130917, end: 20131106
  2. THYRADIN-S [Concomitant]
     Active Substance: LEVOTHYROXINE
     Indication: HYPOTHYROIDISM
     Dates: start: 20130907, end: 20131215
  3. ALKERAN [Suspect]
     Active Substance: MELPHALAN
     Indication: ACUTE MYELOID LEUKAEMIA
     Route: 065
     Dates: start: 20130907, end: 20130907
  4. SOL-MELCORT [Concomitant]
     Active Substance: METHYLPREDNISOLONE SODIUM SUCCINATE
     Indication: PROPHYLAXIS
     Dates: start: 20130907, end: 20130908
  5. VENOGLOBULIN-IH [Concomitant]
     Indication: INFECTION PROPHYLAXIS
     Dates: start: 20130908, end: 20131208
  6. KYTRIL [Concomitant]
     Active Substance: GRANISETRON HYDROCHLORIDE
     Indication: PROPHYLAXIS OF NAUSEA AND VOMITING
     Route: 065
     Dates: start: 20130907, end: 20130915
  7. ORGARAN [Concomitant]
     Active Substance: DANAPAROID SODIUM
     Indication: PROPHYLAXIS
     Dates: start: 20130907, end: 20131028
  8. METHOTREXATE [Concomitant]
     Active Substance: METHOTREXATE
     Indication: PROPHYLAXIS AGAINST GRAFT VERSUS HOST DISEASE
     Dates: start: 20130910, end: 20130915
  9. FUNGUARD [Concomitant]
     Active Substance: MICAFUNGIN SODIUM
     Indication: INFECTION PROPHYLAXIS
     Dates: start: 20130907, end: 20131103
  10. LASTET [Concomitant]
     Active Substance: ETOPOSIDE
     Indication: ACUTE MYELOID LEUKAEMIA
     Dates: start: 20131203, end: 20131205
  11. ANTITHROMBIN III [Concomitant]
     Active Substance: ANTITHROMBIN III HUMAN
     Indication: PROPHYLAXIS
     Dates: start: 20130910, end: 20131215
  12. THYMOGLOBULINE [Suspect]
     Active Substance: LAPINE T-LYMPHOCYTE IMMUNE GLOBULIN
     Indication: BONE MARROW CONDITIONING REGIMEN
     Route: 042
     Dates: start: 20130907, end: 20130907
  13. PROGRAF [Suspect]
     Active Substance: TACROLIMUS\TACROLIMUS ANHYDROUS
     Indication: PROPHYLAXIS AGAINST GRAFT VERSUS HOST DISEASE
     Route: 065
     Dates: start: 20130908, end: 20131008
  14. PREDONINE [Suspect]
     Active Substance: PREDNISOLONE\PREDNISOLONE ACETATE\PREDNISOLONE SODIUM SUCCINATE
     Indication: PROPHYLAXIS AGAINST GRAFT VERSUS HOST DISEASE
     Route: 065
     Dates: start: 20130909, end: 20131215
  15. FLUDARA [Concomitant]
     Active Substance: FLUDARABINE PHOSPHATE
     Indication: ACUTE MYELOID LEUKAEMIA
     Dates: start: 20131203, end: 20131204

REACTIONS (19)
  - Hepatic function abnormal [Not Recovered/Not Resolved]
  - Venoocclusive liver disease [Not Recovered/Not Resolved]
  - Enterococcal sepsis [Recovering/Resolving]
  - Adenovirus infection [Fatal]
  - Pyrexia [Recovered/Resolved]
  - Sepsis [Recovering/Resolving]
  - BK virus infection [Not Recovered/Not Resolved]
  - Gastric mucosal lesion [Not Recovered/Not Resolved]
  - Melaena [Not Recovered/Not Resolved]
  - Renal failure [Not Recovered/Not Resolved]
  - Enterococcal bacteraemia [Recovering/Resolving]
  - Hypertension [Not Recovered/Not Resolved]
  - Thrombotic microangiopathy [Fatal]
  - Inflammation [Unknown]
  - Bacteraemia [Recovered/Resolved]
  - Pyrexia [Not Recovered/Not Resolved]
  - Asphyxia [Recovering/Resolving]
  - Respiratory failure [Fatal]
  - Pyrexia [Recovered/Resolved]

NARRATIVE: CASE EVENT DATE: 20130907
